FAERS Safety Report 6635580-9 (Version None)
Quarter: 2010Q1

REPORT INFORMATION
  Report Type: 
  Country: None (occurrence: None)
  Receive Date: 20100315
  Receipt Date: 20100310
  Transmission Date: 20100710
  Serious: Yes (Hospitalization)
  Sender: FDA-Public Use
  Company Number: AT-MERCK-1003AUT00006

PATIENT
  Age: 48 Year
  Sex: Female

DRUGS (2)
  1. HYDROCORTISONE [Suspect]
     Indication: HYPOPITUITARISM
     Route: 048
     Dates: start: 20040101
  2. SOMATROPIN [Concomitant]
     Route: 065
     Dates: start: 20040101

REACTIONS (1)
  - OESOPHAGEAL CANDIDIASIS [None]
